FAERS Safety Report 13861146 (Version 1)
Quarter: 2017Q3

REPORT INFORMATION
  Report Type: Spontaneous
  Country: GB (occurrence: GB)
  Receive Date: 20170811
  Receipt Date: 20170811
  Transmission Date: 20171127
  Serious: Yes (Other)
  Sender: FDA-Public Use
  Company Number: GB-TEVA-793778ACC

PATIENT
  Age: 48 Year
  Sex: Male

DRUGS (16)
  1. RANITIDINE. [Concomitant]
     Active Substance: RANITIDINE
     Indication: GRAFT VERSUS HOST DISEASE
     Route: 065
  2. DERMOVATE [Concomitant]
     Active Substance: CLOBETASOL
     Indication: GRAFT VERSUS HOST DISEASE
     Route: 065
  3. CICLOSPORIN [Suspect]
     Active Substance: CYCLOSPORINE
     Indication: GRAFT VERSUS HOST DISEASE
     Dosage: 100 MILLIGRAM DAILY; 50 MG, BID
     Route: 065
  4. COTRIMOXAZOLE [Concomitant]
     Active Substance: SULFAMETHOXAZOLE\TRIMETHOPRIM
     Indication: GRAFT VERSUS HOST DISEASE
     Route: 065
  5. FOLIC ACID. [Concomitant]
     Active Substance: FOLIC ACID
     Indication: GRAFT VERSUS HOST DISEASE
     Route: 065
  6. METHOTREXATE. [Concomitant]
     Active Substance: METHOTREXATE
     Indication: GRAFT VERSUS HOST DISEASE
     Dosage: EVERY 03 MONTHS
     Route: 037
  7. MYCOPHENOLATE MOFETIL. [Suspect]
     Active Substance: MYCOPHENOLATE MOFETIL
     Indication: GRAFT VERSUS HOST DISEASE
  8. PREDNISOLONE. [Suspect]
     Active Substance: PREDNISOLONE
     Indication: TRANSPLANT
     Dosage: 60 MILLIGRAM DAILY; 60 MG, QD
     Route: 065
  9. ACICLOVIR [Concomitant]
     Active Substance: ACYCLOVIR
     Indication: GRAFT VERSUS HOST DISEASE
     Dosage: 400 MILLIGRAM DAILY; 400 MG, QD
     Route: 065
  10. VITAMIN B12 [Concomitant]
     Active Substance: CYANOCOBALAMIN
     Indication: GRAFT VERSUS HOST DISEASE
     Route: 065
  11. CICLOSPORIN [Suspect]
     Active Substance: CYCLOSPORINE
     Indication: TRANSPLANT
  12. HYDROCORTISONE. [Concomitant]
     Active Substance: HYDROCORTISONE
     Indication: GRAFT VERSUS HOST DISEASE
     Route: 065
  13. MYCOPHENOLATE MOFETIL. [Suspect]
     Active Substance: MYCOPHENOLATE MOFETIL
     Indication: TRANSPLANT
     Dosage: 2000 MILLIGRAM DAILY; 1000 MG, BID
     Route: 065
  14. PREDNISOLONE. [Suspect]
     Active Substance: PREDNISOLONE
     Indication: GRAFT VERSUS HOST DISEASE
     Dosage: 12.5 MILLIGRAM DAILY; 12.5 MG, QD
     Route: 065
  15. ADCAL-D3 [Concomitant]
     Active Substance: CALCIUM CARBONATE\CHOLECALCIFEROL
     Indication: GRAFT VERSUS HOST DISEASE
     Route: 065
  16. POSACONAZOLE [Concomitant]
     Active Substance: POSACONAZOLE
     Indication: GRAFT VERSUS HOST DISEASE
     Dosage: 300 MILLIGRAM DAILY; 300 MG, QD
     Route: 065

REACTIONS (16)
  - Lymphocyte count decreased [Unknown]
  - Neurotoxicity [Unknown]
  - Blood lactate dehydrogenase increased [Unknown]
  - Haemoglobin decreased [Unknown]
  - Blood phosphorus decreased [Unknown]
  - Haematocrit decreased [Unknown]
  - Blood urea increased [Unknown]
  - Lower gastrointestinal haemorrhage [Unknown]
  - Myelitis transverse [Unknown]
  - Platelet count decreased [Unknown]
  - Alanine aminotransferase increased [Unknown]
  - Red blood cell count decreased [Unknown]
  - Blood albumin decreased [Unknown]
  - Abdominal pain upper [Unknown]
  - Protein total decreased [Unknown]
  - Red cell distribution width increased [Unknown]
